FAERS Safety Report 8025232-5 (Version None)
Quarter: 2012Q1

REPORT INFORMATION
  Report Type: 
  Country: None (occurrence: None)
  Receive Date: 20120105
  Receipt Date: 20111229
  Transmission Date: 20120608
  Serious: Yes (Hospitalization)
  Sender: FDA-Public Use
  Company Number: US-ABBOTT-12P-163-0888355-00

PATIENT
  Sex: Male
  Weight: 88.53 kg

DRUGS (5)
  1. HUMIRA [Suspect]
     Dates: start: 20111110
  2. TOPROL-XL [Concomitant]
     Indication: VASCULAR GRAFT
  3. HUMIRA [Suspect]
     Indication: ANKYLOSING SPONDYLITIS
     Dates: start: 20110901, end: 20110901
  4. LOVOXYL [Concomitant]
     Indication: HYPOTHYROIDISM
  5. PRAVACHOL [Concomitant]
     Indication: BLOOD CHOLESTEROL INCREASED

REACTIONS (2)
  - CORONARY ARTERY OCCLUSION [None]
  - PAIN [None]
